FAERS Safety Report 5601688-X (Version None)
Quarter: 2008Q1

REPORT INFORMATION
  Report Type: 
  Country: None (occurrence: None)
  Receive Date: 20080124
  Receipt Date: 20080117
  Transmission Date: 20080703
  Serious: Yes (Other)
  Sender: FDA-Public Use
  Company Number: GB-ABBOTT-08P-167-0434181-00

PATIENT
  Sex: Female

DRUGS (10)
  1. VALPROATE SODIUM [Suspect]
     Indication: AFFECTIVE DISORDER
     Route: 048
     Dates: start: 20061229, end: 20070418
  2. VALPROATE SODIUM [Suspect]
     Route: 048
     Dates: start: 20070419
  3. LITHIUM CARBONATE [Suspect]
     Indication: AFFECTIVE DISORDER
     Route: 048
     Dates: start: 20070201
  4. LITHIUM CARBONATE [Suspect]
     Route: 048
     Dates: start: 20061229, end: 20070418
  5. LITHIUM CARBONATE [Suspect]
     Dates: end: 20070425
  6. CLOZAPINE [Suspect]
     Indication: SCHIZOPHRENIA
     Route: 048
     Dates: start: 20061128, end: 20061223
  7. CLOZAPINE [Suspect]
     Route: 048
     Dates: start: 20061223, end: 20070419
  8. DIAZEPAM [Concomitant]
     Indication: AGITATION
     Route: 048
     Dates: start: 20070423
  9. LIOTHYRONINE SODIUM [Concomitant]
     Indication: THYROID DISORDER
     Route: 048
     Dates: start: 20060525
  10. SERETIDE [Concomitant]
     Indication: ASTHMA
     Route: 055
     Dates: start: 20070330

REACTIONS (14)
  - AFFECTIVE DISORDER [None]
  - AGITATION [None]
  - ANTIPSYCHOTIC DRUG LEVEL ABOVE THERAPEUTIC [None]
  - ASTHMA [None]
  - BALANCE DISORDER [None]
  - CEREBELLAR ATROPHY [None]
  - CEREBRAL ATROPHY [None]
  - CONFUSIONAL STATE [None]
  - DRUG LEVEL INCREASED [None]
  - DYSARTHRIA [None]
  - MENSTRUAL DISORDER [None]
  - NUCLEAR MAGNETIC RESONANCE IMAGING BRAIN ABNORMAL [None]
  - SEDATION [None]
  - TOXIC ENCEPHALOPATHY [None]
